FAERS Safety Report 11874673 (Version 2)
Quarter: 2016Q1

REPORT INFORMATION
  Report Type: Spontaneous
  Country: US (occurrence: US)
  Receive Date: 20151229
  Receipt Date: 20160330
  Transmission Date: 20160526
  Serious: Yes (Hospitalization, Other)
  Sender: FDA-Public Use
  Company Number: US-ASTRAZENECA-2015SF30506

PATIENT
  Age: 67 Year
  Sex: Male

DRUGS (8)
  1. OMEPRAZOLE MAGNESIUM. [Suspect]
     Active Substance: OMEPRAZOLE MAGNESIUM
     Indication: GASTROOESOPHAGEAL REFLUX DISEASE
     Dosage: GENERIC, 40 MG, DAILY
     Route: 048
     Dates: end: 201504
  2. FINASTERIDE. [Concomitant]
     Active Substance: FINASTERIDE
     Indication: PROSTATOMEGALY
     Route: 048
     Dates: start: 2008
  3. OMEPRAZOLE MAGNESIUM. [Interacting]
     Active Substance: OMEPRAZOLE MAGNESIUM
     Indication: GASTROOESOPHAGEAL REFLUX DISEASE
     Route: 048
     Dates: start: 20081107, end: 20150520
  4. OXYBUTYNIN [Concomitant]
     Active Substance: OXYBUTYNIN
     Indication: HYPERTONIC BLADDER
     Dosage: 10-15 MG, AT NIGHT
     Route: 048
     Dates: start: 2008
  5. LIPITOR [Concomitant]
     Active Substance: ATORVASTATIN CALCIUM
     Route: 048
  6. DILTIAZEM [Concomitant]
     Active Substance: DILTIAZEM
     Indication: HYPERTENSION
     Route: 048
  7. PLAVIX [Interacting]
     Active Substance: CLOPIDOGREL BISULFATE
     Route: 065
  8. LOSARTAN. [Concomitant]
     Active Substance: LOSARTAN
     Indication: HYPERTENSION
     Route: 048

REACTIONS (5)
  - Coronary artery occlusion [Unknown]
  - Hypertension [Unknown]
  - Lung neoplasm malignant [Unknown]
  - Chest discomfort [Unknown]
  - Drug interaction [Unknown]

NARRATIVE: CASE EVENT DATE: 2009
